FAERS Safety Report 7485453-7 (Version None)
Quarter: 2011Q2

REPORT INFORMATION
  Report Type: 
  Country: None (occurrence: None)
  Receive Date: 20110517
  Receipt Date: 20110429
  Transmission Date: 20111010
  Serious: No
  Sender: FDA-Public Use
  Company Number: US-B.I. PHARMACEUTICALS,INC./RIDGEFIELD-2011-BP-08594BP

PATIENT
  Sex: Female

DRUGS (4)
  1. PRADAXA [Suspect]
     Indication: ATRIAL FIBRILLATION
     Dosage: 300 MG
     Route: 048
     Dates: start: 20110101
  2. DILTIAZEM [Concomitant]
     Indication: HYPERTENSION
  3. LISINOPRIL [Concomitant]
     Indication: BLOOD CHOLESTEROL INCREASED
  4. VICODIN [Concomitant]
     Indication: ARTHRITIS

REACTIONS (6)
  - PSYCHOMOTOR HYPERACTIVITY [None]
  - NERVOUSNESS [None]
  - RESTLESSNESS [None]
  - LOGORRHOEA [None]
  - PAIN [None]
  - INITIAL INSOMNIA [None]
